FAERS Safety Report 24717533 (Version 4)
Quarter: 2025Q1

REPORT INFORMATION
  Report Type: Spontaneous
  Country: CN (occurrence: CN)
  Receive Date: 20241210
  Receipt Date: 20250214
  Transmission Date: 20250409
  Serious: Yes (Hospitalization)
  Sender: PAREXEL
  Company Number: CN-SHANGHAI JUNSHI BIOSCIENCES CO., LTD.-CN2024012286

PATIENT

DRUGS (3)
  1. TORIPALIMAB [Suspect]
     Active Substance: TORIPALIMAB
     Indication: Clear cell renal cell carcinoma
     Dosage: 240 MG, Q3WEEKS
     Route: 041
     Dates: start: 20241129, end: 20241129
  2. PAZOPANIB [Concomitant]
     Active Substance: PAZOPANIB
     Indication: Clear cell renal cell carcinoma
     Dosage: 4 DOSAGE FORM, DAILY
     Route: 048
     Dates: start: 20241125
  3. PAZOPANIB [Concomitant]
     Active Substance: PAZOPANIB
     Indication: Clear cell renal cell carcinoma

REACTIONS (4)
  - Hyponatraemic encephalopathy [Recovering/Resolving]
  - Renal impairment [Recovering/Resolving]
  - Cardiac failure [Recovering/Resolving]
  - Liver injury [Not Recovered/Not Resolved]

NARRATIVE: CASE EVENT DATE: 20241129
